FAERS Safety Report 8771832 (Version 1)
Quarter: 2012Q4

REPORT INFORMATION
  Report Type: 
  Country: GB (occurrence: GB)
  Receive Date: 20120905
  Receipt Date: 20120905
  Transmission Date: 20130627
  Serious: Yes (Other)
  Sender: FDA-Public Use
  Company Number: GB-PFIZER INC-2012214755

PATIENT
  Age: 80 Year
  Sex: Female

DRUGS (1)
  1. LYRICA [Suspect]
     Indication: POLYARTHRITIS
     Dosage: 2 x 75mg daily

REACTIONS (4)
  - Amnesia [Unknown]
  - Impaired driving ability [Unknown]
  - Feeling abnormal [Unknown]
  - Off label use [Unknown]
